FAERS Safety Report 15795534 (Version 1)
Quarter: 2019Q1

REPORT INFORMATION
  Report Type: Spontaneous
  Country: US (occurrence: US)
  Receive Date: 20190107
  Receipt Date: 20190107
  Transmission Date: 20190417
  Serious: Yes (Death)
  Sender: FDA-Public Use
  Company Number: None

PATIENT
  Age: 72 Year
  Sex: Male

DRUGS (18)
  1. CALCITONIN [Concomitant]
     Active Substance: CALCITONIN
  2. TAFINLAR [Suspect]
     Active Substance: DABRAFENIB MESYLATE
     Indication: THYROID CANCER
     Route: 048
     Dates: start: 20180818
  3. HUMALOG [Concomitant]
     Active Substance: INSULIN LISPRO
  4. MEKINIST [Suspect]
     Active Substance: TRAMETINIB DIMETHYL SULFOXIDE
     Indication: THYROID CANCER
     Route: 048
     Dates: start: 20180810
  5. ALLOPURINOL. [Concomitant]
     Active Substance: ALLOPURINOL
  6. BASAGLAR [Concomitant]
     Active Substance: INSULIN GLARGINE
  7. DOXYCYLINE [Concomitant]
     Active Substance: DOXYCYCLINE
  8. LEVOTHYROXINE. [Concomitant]
     Active Substance: LEVOTHYROXINE
  9. TAMSULOSIN [Concomitant]
     Active Substance: TAMSULOSIN
  10. BENZONATATE. [Concomitant]
     Active Substance: BENZONATATE
  11. FINASTERIDE. [Concomitant]
     Active Substance: FINASTERIDE
  12. SERTRALINE [Concomitant]
     Active Substance: SERTRALINE HYDROCHLORIDE
  13. VALACYLOVIR [Concomitant]
     Active Substance: VALACYCLOVIR HYDROCHLORIDE
  14. MEKINIST [Suspect]
     Active Substance: TRAMETINIB DIMETHYL SULFOXIDE
     Indication: PLASMA CELL MYELOMA
     Route: 048
     Dates: start: 20180810
  15. TAFINLAR [Suspect]
     Active Substance: DABRAFENIB MESYLATE
     Indication: PLASMA CELL MYELOMA
     Route: 048
     Dates: start: 20180818
  16. LIDOCAINE. [Concomitant]
     Active Substance: LIDOCAINE
  17. ALBUTEROL. [Concomitant]
     Active Substance: ALBUTEROL
  18. SIMVASTATIN. [Concomitant]
     Active Substance: SIMVASTATIN

REACTIONS (1)
  - Death [None]

NARRATIVE: CASE EVENT DATE: 20181212
